FAERS Safety Report 10025965 (Version 2)
Quarter: 2014Q2

REPORT INFORMATION
  Report Type: Spontaneous
  Country: JP (occurrence: JP)
  Receive Date: 20140320
  Receipt Date: 20140422
  Transmission Date: 20141212
  Serious: Yes (Hospitalization)
  Sender: FDA-Public Use
  Company Number: JP-KOWA-2014S1000321

PATIENT
  Age: 86 Year
  Sex: Male
  Weight: 53 kg

DRUGS (7)
  1. LIVALO [Suspect]
     Indication: TYPE 2 DIABETES MELLITUS
     Route: 048
  2. ALOGLIPTIN [Suspect]
     Indication: TYPE 2 DIABETES MELLITUS
     Route: 048
     Dates: start: 20120720, end: 20130819
  3. PIOGLITAZONE [Suspect]
     Indication: TYPE 2 DIABETES MELLITUS
     Route: 048
  4. BLOPRESS [Concomitant]
  5. AMARYL [Concomitant]
     Dates: start: 20120720
  6. NORVASC [Concomitant]
  7. PANALDINE [Concomitant]

REACTIONS (2)
  - Syncope [Recovered/Resolved]
  - Carotid artery stenosis [Recovered/Resolved]
